FAERS Safety Report 23061383 (Version 2)
Quarter: 2023Q4

REPORT INFORMATION
  Report Type: Spontaneous
  Country: US (occurrence: US)
  Receive Date: 20231013
  Receipt Date: 20231103
  Transmission Date: 20240109
  Serious: Yes (Disabling, Other)
  Sender: FDA-Public Use
  Company Number: US-TWI PHARMACEUTICAL, INC-2023SCTW000054

PATIENT

DRUGS (17)
  1. DILTIAZEM HYDROCHLORIDE [Suspect]
     Active Substance: DILTIAZEM HYDROCHLORIDE
     Indication: Palpitations
     Dosage: UNK
     Route: 048
     Dates: start: 202307
  2. PRILOSEC [Suspect]
     Active Substance: OMEPRAZOLE MAGNESIUM
     Indication: Product used for unknown indication
     Dosage: 40 MG, QD, 1 CAPSULE EVERY MORNING (BEFORE BREAKFAST)
     Route: 048
     Dates: start: 20230509, end: 20230815
  3. PEPTO-BISMOL [Concomitant]
     Active Substance: BISMUTH SUBSALICYLATE
     Indication: Product used for unknown indication
     Dosage: UNK
     Route: 065
     Dates: start: 20230509, end: 20230815
  4. FOSAMAX [Concomitant]
     Active Substance: ALENDRONATE SODIUM
     Indication: Product used for unknown indication
     Dosage: 70 MG, WEEKLY (1 TABLET EVERY 7 DAYS)
     Route: 048
     Dates: start: 20230509, end: 20230815
  5. ZOCOR [Concomitant]
     Active Substance: SIMVASTATIN
     Indication: Product used for unknown indication
     Dosage: 20 MG, (5 TIMES A WEEK)
     Route: 065
     Dates: end: 20230815
  6. TOPROL XL [Concomitant]
     Active Substance: METOPROLOL SUCCINATE
     Indication: Palpitations
     Dosage: 25 MG, QD (0.5 TABLET)
     Route: 048
     Dates: end: 20230815
  7. TOPROL XL [Concomitant]
     Active Substance: METOPROLOL SUCCINATE
     Indication: Supraventricular tachycardia
  8. COZAAR [Concomitant]
     Active Substance: LOSARTAN POTASSIUM
     Indication: Product used for unknown indication
     Dosage: 25 MG, QD (1 TABLET EVERY EVENING)
     Route: 048
  9. CIPRO [Concomitant]
     Active Substance: CIPROFLOXACIN HYDROCHLORIDE
     Indication: Product used for unknown indication
     Dosage: 250 MG, (1 TABLET EVERY DAY FOR ONE WEEK EVERY MONTH)
     Route: 048
     Dates: end: 20230815
  10. PROBIOTICS [UMBRELLA TERM] [Concomitant]
     Indication: Product used for unknown indication
     Dosage: UNK UNK, QD
     Route: 048
     Dates: end: 20230815
  11. D-MANNOSE [Concomitant]
     Indication: Urinary tract disorder prophylaxis
     Dosage: 1 DOSAGE FORM, PRN
     Route: 048
     Dates: end: 20230815
  12. ICAPS AREDS FORMULA [Concomitant]
     Indication: Product used for unknown indication
     Dosage: 1 DOSAGE FORM, BID
     Route: 048
     Dates: end: 20230815
  13. CO Q 10 [UBIDECARENONE] [Concomitant]
     Indication: Product used for unknown indication
     Dosage: 200 MG, QD
     Route: 048
     Dates: end: 20230815
  14. VITAMIN D3 [Concomitant]
     Active Substance: CHOLECALCIFEROL
     Indication: Product used for unknown indication
     Dosage: 1 DOSAGE FORM, 5 TIMES A WEEK
     Route: 048
     Dates: end: 20230815
  15. OMEGA-3 FATTY ACIDS [Concomitant]
     Active Substance: OMEGA-3 FATTY ACIDS
     Indication: Product used for unknown indication
     Dosage: 1000 MG, QD
     Route: 048
     Dates: end: 20230728
  16. VITAMIN B12 [Concomitant]
     Active Substance: CYANOCOBALAMIN
     Indication: Product used for unknown indication
     Dosage: 5000 MICROGRAM, BIWEEKLY
     Route: 048
     Dates: end: 20230815
  17. CALCIUM CARBONATE\VITAMIN D [Concomitant]
     Active Substance: CALCIUM CARBONATE\VITAMIN D
     Indication: Product used for unknown indication
     Dosage: UNK, OD
     Route: 048
     Dates: end: 20230815

REACTIONS (9)
  - Lupus-like syndrome [None]
  - Cutaneous lupus erythematosus [None]
  - Bone pain [None]
  - Joint swelling [None]
  - Peripheral swelling [None]
  - Fatigue [None]
  - Drug eruption [None]
  - Rash [None]
  - Dermatitis [None]

NARRATIVE: CASE EVENT DATE: 20230701
